FAERS Safety Report 7636004-5 (Version None)
Quarter: 2011Q3

REPORT INFORMATION
  Report Type: 
  Country: None (occurrence: None)
  Receive Date: 20110726
  Receipt Date: 20110627
  Transmission Date: 20111222
  Serious: Yes (Other)
  Sender: FDA-Public Use
  Company Number: FR-BAYER-2011-058050

PATIENT
  Age: 54 Year
  Sex: Male

DRUGS (1)
  1. NAPROXEN SODIUM [Suspect]

REACTIONS (1)
  - ANGIOEDEMA [None]
